FAERS Safety Report 6677002-8 (Version None)
Quarter: 2010Q2

REPORT INFORMATION
  Report Type: 
  Country: None (occurrence: None)
  Receive Date: 20100412
  Receipt Date: 20100329
  Transmission Date: 20101027
  Serious: Yes (Other)
  Sender: FDA-Public Use
  Company Number: US-ELI_LILLY_AND_COMPANY-US201001006178

PATIENT
  Sex: Female

DRUGS (5)
  1. FORTEO [Suspect]
     Indication: OSTEOPOROSIS
     Dosage: 20 UG, DAILY (1/D)
     Dates: start: 20070101, end: 20090401
  2. ASPIRIN [Concomitant]
  3. BENADRYL [Concomitant]
  4. NEXIUM [Concomitant]
     Indication: GASTROOESOPHAGEAL REFLUX DISEASE
     Dosage: 20 D/F, UNK
  5. TOPROL-XL [Concomitant]
     Indication: CARDIAC DISORDER
     Dosage: 50 D/F, UNK

REACTIONS (11)
  - ANAPHYLACTIC REACTION [None]
  - ANGIOEDEMA [None]
  - ARTHRALGIA [None]
  - BACK PAIN [None]
  - DYSPHAGIA [None]
  - GASTROOESOPHAGEAL REFLUX DISEASE [None]
  - IMMUNE SYSTEM DISORDER [None]
  - LOCAL SWELLING [None]
  - MULTIPLE ALLERGIES [None]
  - SWELLING FACE [None]
  - TONGUE OEDEMA [None]
